FAERS Safety Report 9122376 (Version 2)
Quarter: 2013Q4

REPORT INFORMATION
  Report Type: Spontaneous
  Country: IT (occurrence: IT)
  Receive Date: 20130227
  Receipt Date: 20131113
  Transmission Date: 20140711
  Serious: Yes (Hospitalization)
  Sender: FDA-Public Use
  Company Number: IT-PFIZER INC-2013070424

PATIENT
  Age: 91 Year
  Sex: Female

DRUGS (4)
  1. XANAX [Suspect]
     Indication: PSYCHOMOTOR HYPERACTIVITY
     Dosage: 0.25 MG, 1X/DAY
     Route: 048
     Dates: start: 20110820, end: 20110824
  2. SEREUPIN [Suspect]
     Indication: PSYCHOMOTOR HYPERACTIVITY
     Dosage: 20 MG, 1X/DAY
     Route: 048
     Dates: start: 20110315, end: 20110824
  3. TRANQUIRIT [Suspect]
     Indication: PSYCHOMOTOR HYPERACTIVITY
     Dosage: 10 GTT, 1X/DAY
     Route: 048
     Dates: start: 20110610, end: 20110824
  4. TIMOPTOL [Concomitant]

REACTIONS (2)
  - Injury [Recovering/Resolving]
  - Fall [Recovering/Resolving]
